FAERS Safety Report 8896815 (Version 1)
Quarter: 2012Q4

REPORT INFORMATION
  Report Type: Spontaneous
  Country: US (occurrence: None)
  Receive Date: 20121107
  Receipt Date: 20121107
  Transmission Date: 20130627
  Serious: Yes (Hospitalization)
  Sender: FDA-Public Use
  Company Number: None

PATIENT
  Age: 74 Year
  Sex: Female

DRUGS (14)
  1. CISPLATIN [Suspect]
     Indication: SMALL CELL LUNG CANCER
     Dates: start: 20120401, end: 20120515
  2. ETOPOSIDE [Suspect]
     Indication: SMALL CELL LUNG CANCER
  3. BACLOFEN [Concomitant]
  4. CALCIUM [Concomitant]
  5. SOMA [Concomitant]
  6. CLONAZEPAM [Concomitant]
  7. PREMARIN [Concomitant]
  8. CYMBALTA [Concomitant]
  9. NEXIUM [Concomitant]
  10. FENTANYL [Concomitant]
  11. IRON [Concomitant]
  12. GABAPENTIN [Concomitant]
  13. PERCOCET [Concomitant]
  14. CELEBREX [Concomitant]

REACTIONS (1)
  - Febrile neutropenia [None]
